FAERS Safety Report 17798668 (Version 1)
Quarter: 2020Q2

REPORT INFORMATION
  Report Type: Spontaneous
  Country: ES (occurrence: ES)
  Receive Date: 20200518
  Receipt Date: 20200518
  Transmission Date: 20200714
  Serious: Yes (Death, Other)
  Sender: FDA-Public Use
  Company Number: ES-ACTELION-A-CH2020-204959

PATIENT
  Age: 15 Year
  Sex: Female
  Weight: 36 kg

DRUGS (8)
  1. TREPROSTINIL. [Concomitant]
     Active Substance: TREPROSTINIL
     Dosage: 85 NG/KG, PER MIN
     Route: 042
  2. SILDENAFIL. [Concomitant]
     Active Substance: SILDENAFIL
  3. TRACLEER [Suspect]
     Active Substance: BOSENTAN
     Indication: PULMONARY ARTERIAL HYPERTENSION
     Route: 048
  4. TADALAFIL. [Concomitant]
     Active Substance: TADALAFIL
  5. AMBRISENTAN [Concomitant]
     Active Substance: AMBRISENTAN
  6. TREPROSTINIL. [Concomitant]
     Active Substance: TREPROSTINIL
     Dosage: UNK
     Route: 058
  7. TREPROSTINIL. [Concomitant]
     Active Substance: TREPROSTINIL
     Dosage: 40 NG/KG, PER MIN
     Route: 058
  8. ILOPROST. [Concomitant]
     Active Substance: ILOPROST

REACTIONS (10)
  - Injection site infection [Unknown]
  - Medical device implantation [Unknown]
  - Right ventricular dysfunction [Unknown]
  - Pneumothorax traumatic [Unknown]
  - Post procedural complication [Unknown]
  - Condition aggravated [Unknown]
  - Pulmonary hypertensive crisis [Fatal]
  - Haemodynamic instability [Fatal]
  - Injection site inflammation [Unknown]
  - Injection site pain [Unknown]
